FAERS Safety Report 18460632 (Version 5)
Quarter: 2021Q2

REPORT INFORMATION
  Report Type: Spontaneous
  Country: CA (occurrence: CA)
  Receive Date: 20201103
  Receipt Date: 20210624
  Transmission Date: 20210717
  Serious: Yes (Other)
  Sender: FDA-Public Use
  Company Number: CA-CELLTRION INC.-2020CA022517

PATIENT

DRUGS (17)
  1. INFLECTRA [Suspect]
     Active Substance: INFLIXIMAB-DYYB
     Dosage: 400 MG, 5MG/KG, DOSE ROUNDED UP, AT 2, 6 WEEKS, THEN EVERY 8WEEKS
     Route: 042
     Dates: start: 20200901
  2. INFLECTRA [Suspect]
     Active Substance: INFLIXIMAB-DYYB
     Dosage: 400 MG, 5MG/KG, DOSE ROUNDED UP, AT 2, 6 WEEKS, THEN EVERY 8WEEKS
     Route: 042
     Dates: start: 20201026
  3. INFLECTRA [Suspect]
     Active Substance: INFLIXIMAB-DYYB
     Dosage: 400 MG, 5MG/KG, DOSE ROUNDED UP, AT 2, 6 WEEKS, THEN EVERY 8WEEKS
     Route: 042
     Dates: start: 20210415
  4. PREDNISONE. [Concomitant]
     Active Substance: PREDNISONE
     Dosage: TAPERING DOSE
     Route: 065
  5. PREDNISONE. [Concomitant]
     Active Substance: PREDNISONE
     Dosage: UNK
     Route: 065
  6. INFLECTRA [Suspect]
     Active Substance: INFLIXIMAB-DYYB
     Indication: CROHN^S DISEASE
     Dosage: UNK
     Route: 042
     Dates: start: 20200131, end: 20200131
  7. INFLECTRA [Suspect]
     Active Substance: INFLIXIMAB-DYYB
     Dosage: 400 MG, 5MG/KG, DOSE ROUNDED UP, AT 2, 6 WEEKS, THEN EVERY 8WEEKS
     Route: 042
     Dates: start: 20200316
  8. INFLECTRA [Suspect]
     Active Substance: INFLIXIMAB-DYYB
     Dosage: 400 MG, 5MG/KG, DOSE ROUNDED UP, AT 2, 6 WEEKS, THEN EVERY 8WEEKS
     Route: 042
     Dates: start: 20200901
  9. AMOXICILLIN. [Concomitant]
     Active Substance: AMOXICILLIN
     Indication: ANAL ABSCESS
     Dosage: UNK
     Route: 065
  10. INFLECTRA [Suspect]
     Active Substance: INFLIXIMAB-DYYB
     Dosage: 400 MG, 5MG/KG, DOSE ROUNDED UP, AT 2, 6 WEEKS, THEN EVERY 8WEEKS
     Route: 042
     Dates: start: 20200514
  11. INFLECTRA [Suspect]
     Active Substance: INFLIXIMAB-DYYB
     Dosage: 400 MG, 5MG/KG, DOSE ROUNDED UP, AT 2, 6 WEEKS, THEN EVERY 8WEEKS
     Route: 042
     Dates: start: 20200709
  12. INFLECTRA [Suspect]
     Active Substance: INFLIXIMAB-DYYB
     Dosage: 400 MG, 5MG/KG, DOSE ROUNDED UP, AT 2, 6 WEEKS, THEN EVERY 8WEEKS
     Route: 042
     Dates: start: 20210219
  13. INFLECTRA [Suspect]
     Active Substance: INFLIXIMAB-DYYB
     Dosage: 400 MG, 5MG/KG, DOSE ROUNDED UP, AT 2, 6 WEEKS, THEN EVERY 8WEEKS
     Route: 042
     Dates: start: 20200211
  14. INFLECTRA [Suspect]
     Active Substance: INFLIXIMAB-DYYB
     Dosage: 400 MG, 5MG/KG, DOSE ROUNDED UP, AT 2, 6 WEEKS, THEN EVERY 8WEEKS
     Route: 042
     Dates: start: 20210610
  15. INFLECTRA [Suspect]
     Active Substance: INFLIXIMAB-DYYB
     Dosage: 400 MG, 5MG/KG, DOSE ROUNDED UP, AT 2, 6 WEEKS, THEN EVERY 8WEEKS
     Route: 042
     Dates: start: 20200316
  16. INFLECTRA [Suspect]
     Active Substance: INFLIXIMAB-DYYB
     Dosage: 400 MG, 5MG/KG, DOSE ROUNDED UP, AT 2, 6 WEEKS, THEN EVERY 8WEEKS
     Route: 042
     Dates: start: 20201222
  17. INFLECTRA [Suspect]
     Active Substance: INFLIXIMAB-DYYB
     Dosage: 400 MG, 5MG/KG, DOSE ROUNDED UP, AT 2, 6 WEEKS, THEN EVERY 8WEEKS
     Route: 042
     Dates: start: 20201222

REACTIONS (9)
  - Off label use [Unknown]
  - Rash [Recovering/Resolving]
  - Intentional product use issue [Unknown]
  - Condition aggravated [Recovering/Resolving]
  - Post procedural infection [Unknown]
  - Fistula [Unknown]
  - Heart rate decreased [Unknown]
  - Incorrect dose administered [Unknown]
  - Blood pressure diastolic decreased [Unknown]

NARRATIVE: CASE EVENT DATE: 20200901
